FAERS Safety Report 20539686 (Version 1)
Quarter: 2022Q1

REPORT INFORMATION
  Report Type: Spontaneous
  Country: US (occurrence: None)
  Receive Date: 20220302
  Receipt Date: 20220302
  Transmission Date: 20220423
  Serious: No
  Sender: FDA-Public Use
  Company Number: None

PATIENT
  Age: 66 Year
  Sex: Male
  Weight: 74.25 kg

DRUGS (2)
  1. SUPREP BOWEL PREP [Suspect]
     Active Substance: MAGNESIUM SULFATE\POTASSIUM SULFATE\SODIUM SULFATE
     Indication: Colonoscopy
     Dosage: OTHER FREQUENCY : PM THEN AM;?
     Route: 048
     Dates: start: 20220301, end: 20220302
  2. LIALDA [Concomitant]
     Active Substance: MESALAMINE

REACTIONS (3)
  - Product use complaint [None]
  - Circumstance or information capable of leading to device use error [None]
  - Product preparation issue [None]

NARRATIVE: CASE EVENT DATE: 20220301
